FAERS Safety Report 4280754-8 (Version None)
Quarter: 2004Q1

REPORT INFORMATION
  Report Type: 
  Country: None (occurrence: None)
  Receive Date: 20040127
  Receipt Date: 20040115
  Transmission Date: 20041129
  Serious: Yes (Other)
  Sender: FDA-Public Use
  Company Number: 2004194389KR

PATIENT
  Age: 45 Year
  Sex: Male

DRUGS (3)
  1. DELTA-CORTEF [Suspect]
  2. CYCLOSPORINE [Suspect]
  3. AZATHIOPRINE [Suspect]

REACTIONS (1)
  - CONDYLOMA ACUMINATUM [None]
